FAERS Safety Report 6383537-8 (Version None)
Quarter: 2009Q3

REPORT INFORMATION
  Report Type: 
  Country: None (occurrence: None)
  Receive Date: 20090928
  Receipt Date: 20090916
  Transmission Date: 20100115
  Serious: Yes (Hospitalization, Disabling, Other)
  Sender: FDA-Public Use
  Company Number: 2009AL006153

PATIENT
  Age: 69 Year
  Sex: Male

DRUGS (4)
  1. DOXAZOSIN MESYLATE [Suspect]
     Indication: DYSURIA
     Dosage: 2 MG
  2. DOXAZOSIN MESYLATE [Suspect]
     Indication: UROGENITAL DISORDER
     Dosage: 2 MG
  3. LIPITOR [Concomitant]
  4. FLOMAX [Concomitant]

REACTIONS (11)
  - ANAEMIA [None]
  - ASTHENIA [None]
  - C-REACTIVE PROTEIN INCREASED [None]
  - DRUG INEFFECTIVE [None]
  - DYSPNOEA [None]
  - FEELING ABNORMAL [None]
  - NECK PAIN [None]
  - NO THERAPEUTIC RESPONSE [None]
  - SERUM FERRITIN INCREASED [None]
  - URINARY RETENTION [None]
  - WEIGHT DECREASED [None]
